FAERS Safety Report 15786237 (Version 3)
Quarter: 2019Q1

REPORT INFORMATION
  Report Type: Spontaneous
  Country: KR (occurrence: KR)
  Receive Date: 20190103
  Receipt Date: 20190206
  Transmission Date: 20190417
  Serious: Yes (Hospitalization)
  Sender: FDA-Public Use
  Company Number: KR-SA-2018SA397011

PATIENT
  Age: 78 Year
  Sex: Male

DRUGS (5)
  1. TAXOTERE [Suspect]
     Active Substance: DOCETAXEL
     Dosage: 50.56 MG/M2, (BSA: 1.6/40 MG/M2(BIWEEKLY))
     Route: 042
     Dates: start: 20181127, end: 20181127
  2. TRIPTORELIN ACETATE [Suspect]
     Active Substance: TRIPTORELIN ACETATE
     Indication: PROSTATE CANCER
     Dosage: 11.25 MG, Q3M
     Route: 058
     Dates: start: 20181121, end: 20181121
  3. TAXOTERE [Suspect]
     Active Substance: DOCETAXEL
     Dosage: 66.4 MG/M2, (BSA: 1.6/40 MG/M2(BIWEEKLY))
     Route: 042
     Dates: start: 20181113, end: 20181113
  4. TAXOTERE [Suspect]
     Active Substance: DOCETAXEL
     Indication: PROSTATE CANCER
     Dosage: 66.4 MG/M2, (BSA: 1.6/40 MG/M2(BIWEEKLY))
     Route: 042
     Dates: start: 20180831, end: 20180831
  5. TAXOTERE [Suspect]
     Active Substance: DOCETAXEL
     Dosage: 50.56 MG/M2, (BSA: 1.6/40 MG/M2(BIWEEKLY))
     Route: 042
     Dates: start: 20181211, end: 20181211

REACTIONS (5)
  - Tuberculosis [Recovered/Resolved]
  - Cough [Recovered/Resolved]
  - Dyspnoea [Recovered/Resolved]
  - Sputum purulent [Recovered/Resolved]
  - Pneumothorax [Recovering/Resolving]

NARRATIVE: CASE EVENT DATE: 20181223
